FAERS Safety Report 8064432-5 (Version None)
Quarter: 2012Q1

REPORT INFORMATION
  Report Type: 
  Country: None (occurrence: None)
  Receive Date: 20120123
  Receipt Date: 20120116
  Transmission Date: 20120608
  Serious: Yes (Hospitalization)
  Sender: FDA-Public Use
  Company Number: US-B.I. PHARMACEUTICALS,INC./RIDGEFIELD-2011-BP-25816BP

PATIENT
  Age: 75 Year
  Sex: Female

DRUGS (4)
  1. AVONEX [Suspect]
     Indication: MULTIPLE SCLEROSIS
     Route: 030
  2. MOBIC [Suspect]
     Indication: OSTEOARTHRITIS
     Dates: start: 20110901
  3. AVONEX [Suspect]
  4. METHOTREXATE [Suspect]

REACTIONS (7)
  - CELLULITIS [None]
  - VOMITING [None]
  - COLITIS ISCHAEMIC [None]
  - COLITIS [None]
  - CONSTIPATION [None]
  - DIARRHOEA [None]
  - HAEMORRHAGE [None]
